FAERS Safety Report 11452044 (Version 1)
Quarter: 2015Q3

REPORT INFORMATION
  Report Type: Spontaneous
  Country: IN (occurrence: IN)
  Receive Date: 20150903
  Receipt Date: 20150903
  Transmission Date: 20151125
  Serious: Yes (Death, Hospitalization)
  Sender: FDA-Public Use
  Company Number: IN-COREPHARMA LLC-2015COR00182

PATIENT
  Age: 33 Year
  Sex: Female

DRUGS (1)
  1. PHENYTOIN. [Suspect]
     Active Substance: PHENYTOIN
     Indication: SEIZURE
     Dosage: 100 MG, 3X/DAY

REACTIONS (3)
  - Staphylococcal infection [Fatal]
  - Toxic epidermal necrolysis [Fatal]
  - Radiation interaction [Fatal]
